FAERS Safety Report 12331685 (Version 1)
Quarter: 2016Q2

REPORT INFORMATION
  Report Type: Spontaneous
  Country: CN (occurrence: CN)
  Receive Date: 20160504
  Receipt Date: 20160504
  Transmission Date: 20160815
  Serious: Yes (Other)
  Sender: FDA-Public Use
  Company Number: CN-PFIZER INC-2016229136

PATIENT
  Age: 41 Year
  Sex: Female
  Weight: 61 kg

DRUGS (2)
  1. PHARMORUBICIN [Suspect]
     Active Substance: EPIRUBICIN
     Indication: BREAST CANCER
     Dosage: 140 MG, EVERY 21 DAYS
     Route: 041
     Dates: start: 20150516, end: 20150718
  2. ENDOXAN /00021101/ [Suspect]
     Active Substance: CYCLOPHOSPHAMIDE
     Indication: BREAST CANCER
     Dosage: 0.8 G, EVERY 21 DAYS
     Route: 041
     Dates: start: 20150516, end: 20150718

REACTIONS (3)
  - Hepatitis B [Recovering/Resolving]
  - Hepatic enzyme increased [Recovered/Resolved]
  - Disease recurrence [Recovering/Resolving]

NARRATIVE: CASE EVENT DATE: 20150608
